FAERS Safety Report 7803313-6 (Version None)
Quarter: 2011Q4

REPORT INFORMATION
  Report Type: 
  Country: None (occurrence: None)
  Receive Date: 20111007
  Receipt Date: 20110907
  Transmission Date: 20120403
  Serious: Yes (Other)
  Sender: FDA-Public Use
  Company Number: JP-BAYER-2011-082861

PATIENT
  Age: 86 Year
  Sex: Female

DRUGS (2)
  1. ASPIRIN [Suspect]
     Route: 048
  2. ASPIRIN [Suspect]
     Indication: CEREBRAL ARTERY THROMBOSIS
     Route: 048

REACTIONS (1)
  - HAEMATURIA [None]
